FAERS Safety Report 8355068 (Version 3)
Quarter: 2013Q2

REPORT INFORMATION
  Report Type: Spontaneous
  Country: US (occurrence: US)
  Receive Date: 20120125
  Receipt Date: 20130501
  Transmission Date: 20140414
  Serious: Yes (Hospitalization, Other)
  Sender: FDA-Public Use
  Company Number: US-RB-036531-12

PATIENT
  Age: 53 Year
  Sex: Male

DRUGS (4)
  1. SUBOXONE TABLET [Suspect]
     Indication: DRUG DEPENDENCE
     Dosage: 1 TAB DAILY
     Route: 060
     Dates: start: 2011, end: 2012
  2. SUBOXONE TABLET [Suspect]
     Dosage: DOSING DETAILS UNKNOWN
     Route: 065
     Dates: start: 2013
  3. SUBOXONE FILM [Suspect]
     Indication: DRUG DEPENDENCE
     Dosage: SUBOXONE FILM: 2 FILMS PER DAY
     Route: 065
     Dates: start: 2012, end: 2013
  4. VALIUM [Concomitant]
     Indication: ANXIETY DISORDER
     Route: 048
     Dates: start: 2010

REACTIONS (3)
  - Dyspnoea [Recovered/Resolved]
  - Cholelithiasis [Recovered/Resolved]
  - Abdominal pain [Recovered/Resolved]
